FAERS Safety Report 9967371 (Version 2)
Quarter: 2014Q1

REPORT INFORMATION
  Report Type: Report from Study
  Country: US (occurrence: US)
  Receive Date: 20140305
  Receipt Date: 20140305
  Transmission Date: 20141002
  Serious: No
  Sender: FDA-Public Use
  Company Number: US-ABBVIE-13P-163-1130979-00

PATIENT
  Age: 14 Year
  Sex: Female

DRUGS (6)
  1. HUMIRA [Suspect]
     Indication: PSORIATIC ARTHROPATHY
     Route: 058
     Dates: start: 201301
  2. FLEXERIL [Concomitant]
     Indication: INSOMNIA
  3. NAPROXEN [Concomitant]
     Indication: PAIN
  4. ETODOLAC [Concomitant]
     Indication: PSORIATIC ARTHROPATHY
  5. TRETINOIN [Concomitant]
     Indication: ACNE
     Dosage: 0.1%
  6. CLINDAMYCIN PHOSPHATE [Concomitant]
     Indication: ACNE
     Dosage: 1%

REACTIONS (4)
  - Injection site pain [Not Recovered/Not Resolved]
  - Injection site mass [Not Recovered/Not Resolved]
  - Injection site induration [Not Recovered/Not Resolved]
  - Injection site urticaria [Unknown]
